FAERS Safety Report 24561993 (Version 1)
Quarter: 2024Q4

REPORT INFORMATION
  Report Type: Report from Study
  Country: GB (occurrence: GB)
  Receive Date: 20241029
  Receipt Date: 20241029
  Transmission Date: 20250114
  Serious: Yes (Hospitalization)
  Sender: ROCHE
  Company Number: GB-ROCHE-3502420

PATIENT
  Age: 57 Year
  Sex: Female

DRUGS (1)
  1. TOCILIZUMAB [Suspect]
     Active Substance: TOCILIZUMAB
     Indication: Product used for unknown indication
     Dosage: FREQUENCY TEXT:ONCE
     Route: 058
     Dates: start: 202307

REACTIONS (2)
  - Pain [Unknown]
  - Cerebrovascular accident [Unknown]
